FAERS Safety Report 9683959 (Version 2)
Quarter: 2015Q2

REPORT INFORMATION
  Report Type: Spontaneous
  Country: US (occurrence: US)
  Receive Date: 20131112
  Receipt Date: 20150522
  Transmission Date: 20150821
  Serious: Yes (Death, Hospitalization)
  Sender: FDA-Public Use
  Company Number: PHHY2013US125116

PATIENT
  Age: 29 Year
  Sex: Female

DRUGS (5)
  1. DESVENLAFAXINE. [Suspect]
     Active Substance: DESVENLAFAXINE
     Indication: PRODUCT USED FOR UNKNOWN INDICATION
     Route: 065
  2. IBUPROFEN. [Suspect]
     Active Substance: IBUPROFEN
     Indication: PRODUCT USED FOR UNKNOWN INDICATION
     Route: 065
  3. ESCITALOPRAM [Suspect]
     Active Substance: ESCITALOPRAM OXALATE
     Indication: PRODUCT USED FOR UNKNOWN INDICATION
     Route: 065
  4. BUPROPION [Suspect]
     Active Substance: BUPROPION
     Indication: PRODUCT USED FOR UNKNOWN INDICATION
     Route: 065
  5. QUETIAPINE [Suspect]
     Active Substance: QUETIAPINE
     Indication: PRODUCT USED FOR UNKNOWN INDICATION

REACTIONS (14)
  - Pupil fixed [Fatal]
  - Hypotension [Unknown]
  - Overdose [Unknown]
  - Circulatory collapse [Unknown]
  - Cardiac arrest [Unknown]
  - Gastrointestinal sounds abnormal [Unknown]
  - Corneal reflex decreased [Unknown]
  - Areflexia [Fatal]
  - Unresponsive to stimuli [Fatal]
  - Peripheral coldness [Unknown]
  - Brain injury [Fatal]
  - Pulseless electrical activity [Unknown]
  - Sinus tachycardia [Unknown]
  - Dry skin [Unknown]
